FAERS Safety Report 5382791-9 (Version None)
Quarter: 2007Q2

REPORT INFORMATION
  Report Type: 
  Country: None (occurrence: None)
  Receive Date: 20070629
  Receipt Date: 20070418
  Transmission Date: 20071010
  Serious: Yes (Other)
  Sender: FDA-Public Use
  Company Number: US200704003988

PATIENT
  Age: 61 Year
  Sex: Male

DRUGS (2)
  1. HUMALOG MIX 75/25 [Suspect]
     Indication: DIABETES MELLITUS
     Dosage: AS NEEDED
     Dates: start: 19920101
  2. ENBREL [Concomitant]

REACTIONS (5)
  - BLOOD GLUCOSE DECREASED [None]
  - BLOOD GLUCOSE FLUCTUATION [None]
  - HYPOGLYCAEMIC UNCONSCIOUSNESS [None]
  - PSORIATIC ARTHROPATHY [None]
  - RHEUMATOID ARTHRITIS [None]
